FAERS Safety Report 17858721 (Version 1)
Quarter: 2020Q2

REPORT INFORMATION
  Report Type: Report from Study
  Country: None (occurrence: US)
  Receive Date: 20200604
  Receipt Date: 20200604
  Transmission Date: 20200714
  Serious: No
  Sender: FDA-Public Use
  Company Number: US-US WORLDMEDS, LLC-USW202002-000254

PATIENT
  Age: 61 Year
  Sex: Male
  Weight: 89.35 kg

DRUGS (15)
  1. MELATONIN [Concomitant]
     Active Substance: MELATONIN
  2. APOKYN [Suspect]
     Active Substance: APOMORPHINE HYDROCHLORIDE
     Route: 058
     Dates: start: 20200225
  3. GLUCOSAMINE / CHONDROITIN [Concomitant]
  4. APOKYN [Suspect]
     Active Substance: APOMORPHINE HYDROCHLORIDE
     Route: 058
  5. RYTARY [Concomitant]
     Active Substance: CARBIDOPA\LEVODOPA
  6. LORATADINE. [Concomitant]
     Active Substance: LORATADINE
  7. AMLODIPINE [Concomitant]
     Active Substance: AMLODIPINE BESYLATE
  8. ZINC. [Concomitant]
     Active Substance: ZINC
  9. RASAGILINE. [Concomitant]
     Active Substance: RASAGILINE
  10. TIGAN [Concomitant]
     Active Substance: TRIMETHOBENZAMIDE HYDROCHLORIDE
  11. ARMODAFINIL. [Concomitant]
     Active Substance: ARMODAFINIL
  12. CARBIDOPA / LEVODOPA [Concomitant]
     Active Substance: CARBIDOPA\LEVODOPA
     Dosage: 61.25/245
  13. IBUPROFEN. [Concomitant]
     Active Substance: IBUPROFEN
  14. APOKYN [Suspect]
     Active Substance: APOMORPHINE HYDROCHLORIDE
     Indication: PARKINSON^S DISEASE
     Route: 058
     Dates: start: 20200207
  15. OMEGA-3 ACIDS [Concomitant]
     Active Substance: OMEGA-3 FATTY ACIDS

REACTIONS (5)
  - Nausea [Unknown]
  - Yawning [Unknown]
  - Somnolence [Unknown]
  - Hallucination [Unknown]
  - Dizziness [Unknown]

NARRATIVE: CASE EVENT DATE: 20200207
